FAERS Safety Report 20772004 (Version 3)
Quarter: 2022Q2

REPORT INFORMATION
  Report Type: Spontaneous
  Country: US (occurrence: US)
  Receive Date: 20220501
  Receipt Date: 20220607
  Transmission Date: 20220721
  Serious: Yes (Other)
  Sender: FDA-Public Use
  Company Number: US-009507513-2204USA006901

PATIENT
  Sex: Female
  Weight: 77.098 kg

DRUGS (2)
  1. KEYTRUDA [Suspect]
     Active Substance: PEMBROLIZUMAB
     Indication: Breast cancer female
     Dosage: UNK, EVERY 3 WEEKS (Q21)
     Route: 042
     Dates: start: 20220318
  2. FASLODEX [Suspect]
     Active Substance: FULVESTRANT
     Dosage: 500 MILLIGRAM, EVERY 4 WEEKS
     Dates: start: 20210321

REACTIONS (3)
  - Recurrent cancer [Unknown]
  - Chest pain [Not Recovered/Not Resolved]
  - Radiation associated pain [Recovering/Resolving]

NARRATIVE: CASE EVENT DATE: 20220101
